FAERS Safety Report 23512862 (Version 1)
Quarter: 2024Q1

REPORT INFORMATION
  Report Type: Spontaneous
  Country: US (occurrence: None)
  Receive Date: 20240209
  Receipt Date: 20240209
  Transmission Date: 20240409
  Serious: Yes (Hospitalization)
  Sender: FDA-Public Use
  Company Number: None

PATIENT
  Age: 43 Year
  Sex: Female
  Weight: 95.13 kg

DRUGS (15)
  1. OZEMPIC [Suspect]
     Active Substance: SEMAGLUTIDE
     Dosage: OTHER FREQUENCY : WEEKLY;?
     Route: 058
     Dates: start: 20231222, end: 20240131
  2. TIZANIDINE [Concomitant]
     Active Substance: TIZANIDINE
  3. BENZTROPINE [Concomitant]
     Active Substance: BENZTROPINE
  4. VRAYLAR [Concomitant]
     Active Substance: CARIPRAZINE
  5. HYDROXYZINE [Concomitant]
     Active Substance: HYDROXYZINE HYDROCHLORIDE
  6. HYDROCODONE BITARTRATE AND ACETAMINOPHEN [Concomitant]
     Active Substance: ACETAMINOPHEN\HYDROCODONE BITARTRATE
  7. FOLIC ACID [Concomitant]
     Active Substance: FOLIC ACID
  8. LISINOPRIL [Concomitant]
     Active Substance: LISINOPRIL
  9. METFORMIN [Concomitant]
     Active Substance: METFORMIN HYDROCHLORIDE
  10. HYDROXYCHLOROQUINE [Concomitant]
     Active Substance: HYDROXYCHLOROQUINE
  11. Ropirinole [Concomitant]
  12. PANTOPRAZOLE [Concomitant]
     Active Substance: PANTOPRAZOLE
  13. METHOTREXATE [Concomitant]
     Active Substance: METHOTREXATE
  14. EMGALITY [Concomitant]
     Active Substance: GALCANEZUMAB-GNLM
  15. PREGABALIN [Concomitant]
     Active Substance: PREGABALIN

REACTIONS (2)
  - Therapy change [None]
  - Acute kidney injury [None]

NARRATIVE: CASE EVENT DATE: 20240131
